FAERS Safety Report 8371572-X (Version None)
Quarter: 2012Q2

REPORT INFORMATION
  Report Type: 
  Country: None (occurrence: None)
  Receive Date: 20120518
  Receipt Date: 20120508
  Transmission Date: 20120825
  Serious: Yes (Other)
  Sender: FDA-Public Use
  Company Number: US-ABBOTT-12P-163-0922161-00

PATIENT
  Sex: Male
  Weight: 53.118 kg

DRUGS (5)
  1. SULFASALAZINE [Concomitant]
     Indication: PRODUCT USED FOR UNKNOWN INDICATION
  2. HUMIRA [Suspect]
     Indication: ANKYLOSING SPONDYLITIS
     Dates: start: 20120215, end: 20120304
  3. INDOMETHACIN [Concomitant]
     Indication: PRODUCT USED FOR UNKNOWN INDICATION
     Route: 048
  4. MULTI-VITAMIN [Concomitant]
     Indication: PRODUCT USED FOR UNKNOWN INDICATION
  5. PREDNISONE [Concomitant]
     Indication: PRODUCT USED FOR UNKNOWN INDICATION
     Route: 048
     Dates: start: 20120327

REACTIONS (4)
  - IDIOPATHIC THROMBOCYTOPENIC PURPURA [None]
  - RASH [None]
  - PLATELET COUNT ABNORMAL [None]
  - THROMBOCYTOPENIA [None]
